FAERS Safety Report 23500532 (Version 1)
Quarter: 2024Q1

REPORT INFORMATION
  Report Type: Report from Study
  Country: CO (occurrence: CO)
  Receive Date: 20240208
  Receipt Date: 20240208
  Transmission Date: 20240410
  Serious: Yes (Other)
  Sender: FDA-Public Use
  Company Number: CO-JNJFOC-20231252649

PATIENT
  Age: 60 Year
  Sex: Female
  Weight: 54 kg

DRUGS (1)
  1. SIMPONI [Suspect]
     Active Substance: GOLIMUMAB
     Indication: Rheumatoid arthritis
     Dosage: LAST DRUG APPLICATION: 9-NOV-2023
     Route: 058
     Dates: start: 20180205

REACTIONS (8)
  - Rheumatoid arthritis [Not Recovered/Not Resolved]
  - Application site haemorrhage [Unknown]
  - Hypoaesthesia [Not Recovered/Not Resolved]
  - Asthenia [Not Recovered/Not Resolved]
  - Hypoaesthesia [Not Recovered/Not Resolved]
  - Treatment noncompliance [Unknown]
  - Product dose omission issue [Unknown]
  - Drug ineffective [Unknown]

NARRATIVE: CASE EVENT DATE: 20230801
